FAERS Safety Report 9204746 (Version 2)
Quarter: 2013Q4

REPORT INFORMATION
  Report Type: Spontaneous
  Country: US (occurrence: US)
  Receive Date: 20130402
  Receipt Date: 20131011
  Transmission Date: 20140711
  Serious: Yes (Hospitalization, Disabling)
  Sender: FDA-Public Use
  Company Number: US-BAYER-2013-039223

PATIENT
  Age: 40 Year
  Sex: Female

DRUGS (8)
  1. YAZ [Suspect]
     Dosage: UNK
     Dates: start: 2007, end: 2009
  2. YASMIN [Suspect]
     Dosage: UNK
     Dates: start: 2007, end: 2009
  3. OCELLA [Suspect]
     Dosage: UNK
     Dates: start: 2007, end: 2009
  4. CIPROFLOXACIN [Concomitant]
  5. ORPHENADRINE [Concomitant]
  6. TRAMADOL [Concomitant]
  7. ZANTAC [Concomitant]
  8. FLEXERIL [Concomitant]

REACTIONS (7)
  - Cholecystitis [None]
  - Gallbladder disorder [None]
  - Injury [None]
  - Pain [None]
  - Deformity [None]
  - Anxiety [None]
  - Anhedonia [None]
